FAERS Safety Report 8237569 (Version 4)
Quarter: 2015Q1

REPORT INFORMATION
  Report Type: Report from Study
  Country: US (occurrence: US)
  Receive Date: 20111109
  Receipt Date: 20150205
  Transmission Date: 20150721
  Serious: Yes (Other)
  Sender: FDA-Public Use
  Company Number: US-UCBSA-044863

PATIENT
  Age: 0 Year
  Sex: Female
  Weight: 1.58 kg

DRUGS (39)
  1. PREDNISONE. [Concomitant]
     Active Substance: PREDNISONE
     Route: 064
     Dates: start: 201106, end: 201106
  2. PREDNISONE. [Concomitant]
     Active Substance: PREDNISONE
     Dosage: DAILY DOSE: 60 MG
     Route: 064
     Dates: start: 20110331, end: 20110413
  3. ZOLOFT [Concomitant]
     Active Substance: SERTRALINE HYDROCHLORIDE
     Dosage: DAILY DOSE: 50 MG
     Route: 064
  4. FOL CAPS OMEGA 3 [Concomitant]
     Route: 064
  5. PREPARATION H OINTMENT [Concomitant]
     Active Substance: MINERAL OIL\PETROLATUM\PHENYLEPHRINE HYDROCHLORIDE
     Dosage: 4 TIMES AS NEEDED
     Route: 064
  6. ASACOL [Concomitant]
     Active Substance: MESALAMINE
     Indication: CROHN^S DISEASE
     Route: 064
     Dates: start: 19991105
  7. CIPRO [Concomitant]
     Active Substance: CIPROFLOXACIN HYDROCHLORIDE
     Indication: CROHN^S DISEASE
     Route: 064
     Dates: start: 20100706
  8. PREDNISONE. [Concomitant]
     Active Substance: PREDNISONE
     Route: 064
  9. IV STEROIDS [Concomitant]
     Active Substance: UNSPECIFIED INGREDIENT
     Route: 064
  10. PANTOPRAZOLE [Concomitant]
     Active Substance: PANTOPRAZOLE SODIUM
     Dosage: 40 MG, ONCE DAILY (QD)
     Route: 064
  11. SOLU-MEDROL [Concomitant]
     Active Substance: METHYLPREDNISOLONE SODIUM SUCCINATE
     Route: 064
  12. CERTOLIZUMAB PEGOL CD [Suspect]
     Active Substance: CERTOLIZUMAB PEGOL
     Indication: CROHN^S DISEASE
     Dosage: 400 MG, EV 2 WEEKS(QOW)
     Route: 064
     Dates: start: 20110101, end: 20110820
  13. PREDNISONE. [Concomitant]
     Active Substance: PREDNISONE
     Dosage: DAILY DOSE: 50 MG
     Route: 064
     Dates: start: 20110414, end: 20110427
  14. MACROBID [Concomitant]
     Active Substance: NITROFURANTOIN\NITROFURANTOIN MONOHYDRATE
     Indication: CROHN^S DISEASE
     Route: 064
     Dates: start: 20110603, end: 20110820
  15. KEFLEX [Concomitant]
     Active Substance: CEPHALEXIN
     Indication: URINARY TRACT INFECTION
     Dosage: 500 MG
     Route: 064
     Dates: start: 20110614, end: 20110621
  16. PERIDEX [Concomitant]
     Active Substance: CHLORHEXIDINE GLUCONATE
     Dosage: 3 TIMES DAILY
     Route: 064
  17. PREDNISONE. [Concomitant]
     Active Substance: PREDNISONE
     Indication: CROHN^S DISEASE
     Dosage: DAILY DOSE: 60 MG
     Route: 064
     Dates: start: 201106
  18. OXYCODONE [Concomitant]
     Active Substance: OXYCODONE
     Indication: PAIN
     Dosage: ONE TABLET EVERY FOUR TO SIX HOURS
     Route: 064
  19. PREDNISONE. [Concomitant]
     Active Substance: PREDNISONE
     Dosage: DAILY DOSE: 10 MG
     Route: 064
     Dates: start: 20110609
  20. PREDNISONE. [Concomitant]
     Active Substance: PREDNISONE
     Dosage: DAILY DOSE: 20 MG
     Route: 064
     Dates: start: 20110526, end: 20110608
  21. AUGMENTIN [Concomitant]
     Active Substance: AMOXICILLIN\CLAVULANATE POTASSIUM
     Indication: CROHN^S DISEASE
     Route: 064
     Dates: start: 20110603, end: 20110613
  22. PRILOSEC [Concomitant]
     Active Substance: OMEPRAZOLE MAGNESIUM
     Indication: DYSPEPSIA
     Dosage: 40 MG, 2X/DAY (BID)
     Route: 064
     Dates: start: 20110412
  23. DIPHENOXYLATE WITH ATROPINE [Concomitant]
     Route: 064
  24. PRENATAL VITAMINS [Concomitant]
     Active Substance: VITAMINS
     Route: 064
  25. ORAL STEROIDS [Concomitant]
     Route: 064
  26. UNASYN [Concomitant]
     Active Substance: AMPICILLIN SODIUM\SULBACTAM SODIUM
     Indication: INFECTION
     Route: 064
     Dates: start: 20110814, end: 20110823
  27. LOMOTIL [Concomitant]
     Active Substance: ATROPINE SULFATE\DIPHENOXYLATE HYDROCHLORIDE
     Indication: DIARRHOEA
     Dosage: 2.5-0.025 MG TID
     Route: 064
  28. PREDNISONE. [Concomitant]
     Active Substance: PREDNISONE
     Dosage: 60 MG
     Route: 064
     Dates: end: 201106
  29. PREDNISONE. [Concomitant]
     Active Substance: PREDNISONE
     Dosage: DAILY DOSE: 25 MG
     Route: 064
     Dates: start: 20110512, end: 20110525
  30. ACYCLOVIR. [Concomitant]
     Active Substance: ACYCLOVIR
     Indication: CROHN^S DISEASE
     Dosage: 800 MG, 5X/DAY
     Route: 064
     Dates: start: 20110513, end: 20110628
  31. IMODIUM [Concomitant]
     Active Substance: LOPERAMIDE HYDROCHLORIDE
     Route: 064
  32. PREDNISONE. [Concomitant]
     Active Substance: PREDNISONE
     Dosage: DAILY DOSE: 40 MG
     Route: 064
     Dates: start: 20110428, end: 20110511
  33. KEFLEX [Concomitant]
     Active Substance: CEPHALEXIN
     Indication: CROHN^S DISEASE
     Route: 064
     Dates: start: 20110811, end: 20110823
  34. PHENERGAN [Concomitant]
     Active Substance: PROMETHAZINE HYDROCHLORIDE
     Indication: NAUSEA
     Dosage: 25 MG TWICE A DAY
     Route: 064
     Dates: start: 20110412
  35. NYSTATIN. [Concomitant]
     Active Substance: NYSTATIN
     Dosage: FOUR TIMES DAILY
     Route: 064
  36. VANCOMYCIN [Concomitant]
     Active Substance: VANCOMYCIN
     Dosage: FOR TWO DAYS
     Route: 064
  37. ASACOL [Concomitant]
     Active Substance: MESALAMINE
     Dosage: 1200 MG, 3X/DAY (TID)
     Route: 064
  38. ACTOS [Concomitant]
     Active Substance: PIOGLITAZONE HYDROCHLORIDE
     Indication: GESTATIONAL DIABETES
     Dosage: 15 MG DAILY
     Route: 064
  39. ALBUTEROL MDI [Concomitant]
     Dosage: UNK UNK, AS NEEDED (PRN)
     Route: 064

REACTIONS (2)
  - Foetal exposure during pregnancy [Unknown]
  - Premature baby [Recovered/Resolved]

NARRATIVE: CASE EVENT DATE: 20110101
